FAERS Safety Report 8718464 (Version 2)
Quarter: 2015Q2

REPORT INFORMATION
  Report Type: Report from Study
  Country: US (occurrence: US)
  Receive Date: 20120810
  Receipt Date: 20150624
  Transmission Date: 20150821
  Serious: Yes (Hospitalization)
  Sender: FDA-Public Use
  Company Number: US-ROCHE-1098774

PATIENT
  Age: 64 Year
  Sex: Male

DRUGS (5)
  1. NUBAIN [Concomitant]
     Active Substance: NALBUPHINE HYDROCHLORIDE
     Route: 042
  2. ACTIVASE [Suspect]
     Active Substance: ALTEPLASE
     Indication: ACUTE MYOCARDIAL INFARCTION
     Route: 040
  3. ACTIVASE [Suspect]
     Active Substance: ALTEPLASE
     Route: 040
  4. ISORDIL [Concomitant]
     Active Substance: ISOSORBIDE DINITRATE
     Route: 048
  5. PERSANTINE [Concomitant]
     Active Substance: DIPYRIDAMOLE
     Route: 048

REACTIONS (5)
  - Blood pressure increased [Recovered/Resolved]
  - Blood creatine phosphokinase increased [Unknown]
  - Speech disorder [Unknown]
  - Activated partial thromboplastin time prolonged [Unknown]
  - Hemiparesis [Unknown]
